FAERS Safety Report 6399795-X (Version None)
Quarter: 2009Q4

REPORT INFORMATION
  Report Type: 
  Country: None (occurrence: None)
  Receive Date: 20091014
  Receipt Date: 20070607
  Transmission Date: 20100525
  Serious: Yes (Hospitalization, Other)
  Sender: FDA-Public Use
  Company Number: US-ASTRAZENECA-2006UW26355

PATIENT
  Age: 19832 Day
  Sex: Female
  Weight: 108.9 kg

DRUGS (16)
  1. SEROQUEL [Suspect]
     Indication: SLEEP DISORDER
     Dosage: 100 MG TO 300 MG
     Route: 048
     Dates: start: 20040519
  2. SEROQUEL [Suspect]
     Route: 048
     Dates: end: 20050701
  3. WELLBUTRIN [Concomitant]
     Dosage: 100 MG TO 350 MG
     Dates: start: 20040519
  4. VISTARIL [Concomitant]
     Dates: start: 20041116
  5. TRAZODONE [Concomitant]
     Dosage: 50 MG DISPENSED
     Dates: start: 20050208
  6. NEXIUM [Concomitant]
     Route: 048
     Dates: start: 20050623
  7. METHOCARBAMOL [Concomitant]
     Dates: start: 20050623
  8. IMITREX [Concomitant]
     Route: 048
     Dates: start: 20050623
  9. GLUCOPHAGE [Concomitant]
     Dates: start: 20050818
  10. ASPIRIN [Concomitant]
     Indication: RENAL DISORDER
     Dosage: 81 MG TO 325 MG
     Dates: start: 20050624
  11. ACTOS [Concomitant]
     Dosage: 15 MG TO 30 MG
     Dates: start: 20050818
  12. LISINOPRIL [Concomitant]
     Dates: start: 20040624
  13. DIOVAN [Concomitant]
     Dates: start: 20050818
  14. GLYBURIDE [Concomitant]
     Dates: start: 20050818
  15. AVANDAMET [Concomitant]
     Indication: DIABETES MELLITUS
     Dosage: 4/500 MG DAILY
     Dates: start: 20050624
  16. GLUCOTROL XL [Concomitant]
     Indication: DIABETES MELLITUS
     Dates: start: 20050624

REACTIONS (5)
  - DIABETES MELLITUS [None]
  - DIABETES WITH HYPEROSMOLARITY [None]
  - GLUCOSE TOLERANCE IMPAIRED [None]
  - NEUROPATHY PERIPHERAL [None]
  - TYPE 2 DIABETES MELLITUS [None]
